FAERS Safety Report 6770465-9 (Version None)
Quarter: 2010Q2

REPORT INFORMATION
  Report Type: 
  Country: None (occurrence: None)
  Receive Date: 20100608
  Receipt Date: 20100531
  Transmission Date: 20101027
  Serious: Yes (Other)
  Sender: FDA-Public Use
  Company Number: A0862492A

PATIENT
  Sex: Female

DRUGS (1)
  1. SODIUM FLUORIDE + ISOPENTANE + POTASSIUM NITRATE TOOTHPASTE [Suspect]
     Indication: DENTAL CARE
     Dosage: DENTAL
     Route: 004

REACTIONS (3)
  - DEVICE DIFFICULT TO USE [None]
  - PRODUCT QUALITY ISSUE [None]
  - RETCHING [None]
